FAERS Safety Report 15779186 (Version 2)
Quarter: 2019Q1

REPORT INFORMATION
  Report Type: Spontaneous
  Country: US (occurrence: US)
  Receive Date: 20190101
  Receipt Date: 20190212
  Transmission Date: 20190417
  Serious: No
  Sender: FDA-Public Use
  Company Number: US-ASTRAZENECA-2018SF69884

PATIENT
  Age: 24946 Day
  Sex: Female
  Weight: 81.6 kg

DRUGS (2)
  1. ZYRTEC-D ALLERGY AND CONGESTION [Concomitant]
     Active Substance: CETIRIZINE HYDROCHLORIDE\PSEUDOEPHEDRINE HYDROCHLORIDE
     Indication: NASAL CONGESTION
     Route: 048
  2. PULMICORT FLEXHALER [Suspect]
     Active Substance: BUDESONIDE
     Indication: SARCOIDOSIS
     Dosage: 180MCG 2 PUFFS TWICE A DAY
     Route: 055
     Dates: start: 201811

REACTIONS (7)
  - Off label use [Unknown]
  - Cough [Unknown]
  - Intentional product misuse [Unknown]
  - Product dose omission [Unknown]
  - Device malfunction [Unknown]
  - Product use in unapproved indication [Unknown]
  - Dyspnoea [Unknown]
